FAERS Safety Report 5509512-0 (Version None)
Quarter: 2007Q4

REPORT INFORMATION
  Report Type: 
  Country: None (occurrence: None)
  Receive Date: 20071029
  Receipt Date: 20070807
  Transmission Date: 20080405
  Serious: No
  Sender: FDA-Public Use
  Company Number: 013071

PATIENT
  Age: 31 Year
  Sex: Female

DRUGS (7)
  1. PRIALT [Suspect]
     Indication: BACK PAIN
     Dosage: UG, ONCE/HOUR; INTRATHECAL, 0.33UG, ONCE/HOUR, INTRATHECAL, 0.25 UG, ONCE/HOUR, INTRATHECAL
     Route: 037
     Dates: start: 20070730, end: 20070803
  2. PRIALT [Suspect]
     Indication: BACK PAIN
     Dosage: UG, ONCE/HOUR; INTRATHECAL, 0.33UG, ONCE/HOUR, INTRATHECAL, 0.25 UG, ONCE/HOUR, INTRATHECAL
     Route: 037
     Dates: start: 20070301
  3. PRIALT [Suspect]
     Indication: BACK PAIN
     Dosage: UG, ONCE/HOUR; INTRATHECAL, 0.33UG, ONCE/HOUR, INTRATHECAL, 0.25 UG, ONCE/HOUR, INTRATHECAL
     Route: 037
     Dates: start: 20070803
  4. METHADONE HCL [Concomitant]
  5. OXYCODONE HCL [Concomitant]
  6. VALIUM /00017001/(DIAZEPAM) [Concomitant]
  7. CLONIDINE [Concomitant]

REACTIONS (9)
  - ALOPECIA [None]
  - ASTHENIA [None]
  - DYSGEUSIA [None]
  - FEELING COLD [None]
  - HALLUCINATION, AUDITORY [None]
  - HOT FLUSH [None]
  - INSOMNIA [None]
  - PALPITATIONS [None]
  - PAROSMIA [None]
